FAERS Safety Report 11312419 (Version 1)
Quarter: 2015Q3

REPORT INFORMATION
  Report Type: Spontaneous
  Country: US (occurrence: None)
  Receive Date: 20150724
  Receipt Date: 20150724
  Transmission Date: 20151125
  Serious: No
  Sender: FDA-Public Use
  Company Number: None

PATIENT
  Age: 55 Year
  Sex: Female
  Weight: 79.38 kg

DRUGS (8)
  1. ISOVUE [Suspect]
     Active Substance: IOPAMIDOL
     Indication: INFLAMMATION
     Dates: start: 20150408, end: 20150408
  2. MULTIVITAMIN [Concomitant]
     Active Substance: VITAMINS
  3. RESTASIS [Concomitant]
     Active Substance: CYCLOSPORINE
  4. HYDROCHLOROTHIAZIDE. [Concomitant]
     Active Substance: HYDROCHLOROTHIAZIDE
  5. LIDOCAINE. [Suspect]
     Active Substance: LIDOCAINE
  6. FLONASE [Concomitant]
     Active Substance: FLUTICASONE PROPIONATE
  7. DEPO-MEDROL [Suspect]
     Active Substance: METHYLPREDNISOLONE ACETATE
  8. ALMODIPINE BESYLATE [Concomitant]

REACTIONS (12)
  - Abdominal pain upper [None]
  - Pain in extremity [None]
  - Back pain [None]
  - Neck pain [None]
  - Dyspnoea [None]
  - Tremor [None]
  - Disturbance in attention [None]
  - Fatigue [None]
  - Headache [None]
  - Muscular weakness [None]
  - Hypoaesthesia [None]
  - Dizziness [None]

NARRATIVE: CASE EVENT DATE: 20150408
